FAERS Safety Report 18394615 (Version 1)
Quarter: 2020Q4

REPORT INFORMATION
  Report Type: Spontaneous
  Country: CN (occurrence: CN)
  Receive Date: 20201016
  Receipt Date: 20201016
  Transmission Date: 20210114
  Serious: Yes (Hospitalization)
  Sender: FDA-Public Use
  Company Number: CN-ASTRAZENECA-2020SF26684

PATIENT
  Age: 72 Year
  Sex: Female
  Weight: 63 kg

DRUGS (3)
  1. LOSEC [Suspect]
     Active Substance: OMEPRAZOLE
     Indication: ABDOMINAL DISCOMFORT
     Dosage: 1 TABLET EVERY MORNING
     Route: 048
  2. ASPIRIN. [Concomitant]
     Active Substance: ASPIRIN
     Dosage: 1 TABLET EVERY NIGHT, ONCE EVERY OTHER DAY,
     Route: 048
  3. TALCID [Concomitant]
     Active Substance: HYDROTALCITE
     Dosage: 1 TABLET EVERY NIGHT, ONCE EVERY OTHER DAY,
     Route: 048

REACTIONS (2)
  - Feeding disorder [Unknown]
  - Abdominal discomfort [Recovering/Resolving]
